FAERS Safety Report 8373700-9 (Version None)
Quarter: 2012Q2

REPORT INFORMATION
  Report Type: 
  Country: None (occurrence: None)
  Receive Date: 20120521
  Receipt Date: 20120514
  Transmission Date: 20120825
  Serious: Yes (Death, Hospitalization, Other)
  Sender: FDA-Public Use
  Company Number: US-ALLERGAN-1206883US

PATIENT
  Age: 6 Year
  Sex: Female
  Weight: 26.2 kg

DRUGS (3)
  1. BOTULINUM TOXIN TYPE A [Suspect]
     Dosage: 400 UNITS
     Dates: start: 20120111, end: 20120111
  2. BOTULINUM TOXIN TYPE A [Suspect]
     Indication: CEREBRAL PALSY
     Dosage: 400 UNITS
     Route: 030
     Dates: start: 20120427, end: 20120427
  3. BACLOFEN [Concomitant]
     Indication: PRODUCT USED FOR UNKNOWN INDICATION

REACTIONS (10)
  - CARDIO-RESPIRATORY ARREST [None]
  - LIP SWELLING [None]
  - RESPIRATORY RATE INCREASED [None]
  - PERICARDIAL EFFUSION [None]
  - INFLUENZA [None]
  - BLOOD GLUCOSE INCREASED [None]
  - TACHYCARDIA [None]
  - CARDIO-RESPIRATORY DISTRESS [None]
  - ALTERED STATE OF CONSCIOUSNESS [None]
  - SWELLING FACE [None]
